FAERS Safety Report 9670001 (Version 2)
Quarter: 2013Q4

REPORT INFORMATION
  Report Type: Spontaneous
  Country: DE (occurrence: DE)
  Receive Date: 20131105
  Receipt Date: 20131105
  Transmission Date: 20140711
  Serious: Yes (Other)
  Sender: FDA-Public Use
  Company Number: GXKR2013DE003042

PATIENT
  Age: 79 Year
  Sex: Female
  Weight: 71 kg

DRUGS (2)
  1. AMOXICLAV 1A PHARMA [Suspect]
     Indication: PNEUMONIA
     Dosage: 1 DF, BID
     Route: 048
     Dates: start: 20130910, end: 20130913
  2. MARCUMAR [Concomitant]
     Dosage: UNK UKN, UNK
     Route: 048

REACTIONS (1)
  - Melaena [Recovered/Resolved]
